FAERS Safety Report 11829886 (Version 1)
Quarter: 2015Q4

REPORT INFORMATION
  Report Type: Report from Study
  Country: DE (occurrence: DE)
  Receive Date: 20151212
  Receipt Date: 20151212
  Transmission Date: 20160305
  Serious: Yes (Hospitalization, Other)
  Sender: FDA-Public Use
  Company Number: DE-BIOGEN-2015BI142896

PATIENT
  Age: 52 Year
  Sex: Female
  Weight: 93 kg

DRUGS (17)
  1. IBUPROFEN. [Concomitant]
     Active Substance: IBUPROFEN
     Indication: HYPERSENSITIVITY
  2. TYSABRI [Suspect]
     Active Substance: NATALIZUMAB
     Indication: MULTIPLE SCLEROSIS
     Route: 042
     Dates: start: 20150622, end: 20150801
  3. IBUPROFEN. [Concomitant]
     Active Substance: IBUPROFEN
     Indication: MUSCULOSKELETAL STIFFNESS
     Route: 048
     Dates: start: 2000
  4. FAMPYRA [Concomitant]
     Active Substance: DALFAMPRIDINE
     Indication: GAIT DISTURBANCE
     Route: 048
     Dates: start: 2010
  5. VITAMIN B12 [Concomitant]
     Active Substance: CYANOCOBALAMIN
     Indication: HYPOVITAMINOSIS
     Route: 030
  6. ZOPICLONE [Concomitant]
     Active Substance: ZOPICLONE
     Indication: INSOMNIA
     Route: 048
     Dates: start: 2007
  7. BACLOFEN. [Concomitant]
     Active Substance: BACLOFEN
     Indication: MUSCLE SPASTICITY
     Route: 048
     Dates: start: 2007
  8. SIMVASTATIN. [Concomitant]
     Active Substance: SIMVASTATIN
     Indication: HYPERCHOLESTEROLAEMIA
     Route: 048
     Dates: start: 2006
  9. VIGANTOLETTEN [Concomitant]
     Active Substance: CHOLECALCIFEROL
     Indication: HYPOVITAMINOSIS
     Route: 048
     Dates: start: 2011
  10. GLUCOPHAGE [Concomitant]
     Active Substance: METFORMIN HYDROCHLORIDE
     Indication: DIABETES MELLITUS
     Route: 048
     Dates: start: 20140708
  11. GABAPENTIN. [Concomitant]
     Active Substance: GABAPENTIN
     Indication: MYOCLONUS
     Route: 048
     Dates: start: 20140907
  12. EMSELEX [Concomitant]
     Active Substance: DARIFENACIN HYDROBROMIDE
     Indication: INCONTINENCE
     Route: 048
     Dates: start: 20141108
  13. TRESIBA [Concomitant]
     Active Substance: INSULIN DEGLUDEC
     Indication: DIABETES MELLITUS
     Route: 058
     Dates: start: 20140701
  14. VICTOZA [Concomitant]
     Active Substance: LIRAGLUTIDE
     Route: 058
     Dates: start: 20140714
  15. BLEMAREN [Concomitant]
     Indication: RENAL LITHIASIS PROPHYLAXIS
     Route: 048
     Dates: start: 2009
  16. BELOC ZOK MITE [Concomitant]
     Active Substance: METOPROLOL SUCCINATE
     Indication: HYPERTENSION
     Route: 048
     Dates: start: 2000
  17. MILGAMMA [Concomitant]
     Active Substance: VITAMIN B
     Indication: HYPOVITAMINOSIS
     Route: 048
     Dates: start: 2011

REACTIONS (1)
  - Malignant melanoma in situ [Recovered/Resolved with Sequelae]

NARRATIVE: CASE EVENT DATE: 20150929
